FAERS Safety Report 12593542 (Version 2)
Quarter: 2017Q3

REPORT INFORMATION
  Report Type: Spontaneous
  Country: US (occurrence: US)
  Receive Date: 20160726
  Receipt Date: 20170728
  Transmission Date: 20171127
  Serious: No
  Sender: FDA-Public Use
  Company Number: US-ABBVIE-16K-163-1642991-00

PATIENT
  Sex: Female
  Weight: 52.1 kg

DRUGS (10)
  1. NAPROXEN SODIUM. [Concomitant]
     Active Substance: NAPROXEN SODIUM
     Indication: ARTHRITIS
     Dates: start: 2007
  2. PRIMROSE OIL [Concomitant]
     Indication: ARTHRITIS
     Dosage: GELTAB
     Route: 048
     Dates: start: 2010
  3. SYNTHROID [Suspect]
     Active Substance: LEVOTHYROXINE SODIUM
     Indication: HYPOTHYROIDISM
     Dosage: 1 PER DAY 6 TIMES A WEEK
     Route: 048
     Dates: start: 1980, end: 201602
  4. SYNTHROID [Interacting]
     Active Substance: LEVOTHYROXINE SODIUM
     Route: 048
     Dates: start: 201602
  5. PREMARIN [Interacting]
     Active Substance: ESTROGENS, CONJUGATED
     Indication: ARTIFICIAL MENOPAUSE
     Route: 048
     Dates: start: 1983
  6. PREMARIN [Interacting]
     Active Substance: ESTROGENS, CONJUGATED
     Indication: VULVOVAGINAL DRYNESS
     Route: 048
     Dates: start: 201602
  7. CLONAZEPAM. [Concomitant]
     Active Substance: CLONAZEPAM
     Indication: MUSCLE SPASMS
     Route: 048
     Dates: start: 1990
  8. PREMARIN [Interacting]
     Active Substance: ESTROGENS, CONJUGATED
     Dosage: CREAM AT BEDTIME
     Route: 067
     Dates: start: 2007
  9. ASPIRIN. [Concomitant]
     Active Substance: ASPIRIN
     Indication: ISCHAEMIC HEART DISEASE PROPHYLAXIS
     Dates: start: 1985
  10. VOLTAREN [Concomitant]
     Active Substance: DICLOFENAC SODIUM
     Indication: ARTHRITIS
     Dosage: APPLIES TO HANDS NIGHTLY
     Route: 061
     Dates: start: 2007

REACTIONS (29)
  - Confusional state [Unknown]
  - Product container seal issue [Unknown]
  - Tongue disorder [Not Recovered/Not Resolved]
  - Hormone level abnormal [Unknown]
  - Drug interaction [Unknown]
  - Mood swings [Unknown]
  - Weight decreased [Not Recovered/Not Resolved]
  - Weight fluctuation [Unknown]
  - Product physical issue [Unknown]
  - Speech disorder [Not Recovered/Not Resolved]
  - Alopecia [Unknown]
  - Myalgia [Unknown]
  - Antisocial behaviour [Unknown]
  - Drug ineffective [Unknown]
  - Vulvovaginal dryness [Unknown]
  - Malaise [Unknown]
  - Amnesia [Unknown]
  - Rash erythematous [Unknown]
  - Dry skin [Unknown]
  - Hot flush [Unknown]
  - Drug dose omission [Unknown]
  - Soliloquy [Unknown]
  - Abnormal behaviour [Unknown]
  - Blood thyroid stimulating hormone decreased [Unknown]
  - Poor quality sleep [Not Recovered/Not Resolved]
  - Pollakiuria [Unknown]
  - Blood oestrogen decreased [Unknown]
  - Suspected counterfeit product [Unknown]
  - Vulvovaginal pain [Not Recovered/Not Resolved]

NARRATIVE: CASE EVENT DATE: 2005
